FAERS Safety Report 21761154 (Version 2)
Quarter: 2022Q4

REPORT INFORMATION
  Report Type: Spontaneous
  Country: US (occurrence: US)
  Receive Date: 20221221
  Receipt Date: 20221227
  Transmission Date: 20230113
  Serious: Yes (Other)
  Sender: FDA-Public Use
  Company Number: US-PFIZER INC-202201384035

PATIENT
  Age: 76 Year
  Sex: Male
  Weight: 77.11 kg

DRUGS (5)
  1. PROTONIX [Suspect]
     Active Substance: PANTOPRAZOLE SODIUM
     Indication: Gastrooesophageal reflux disease
     Dosage: 1 DF, DAILY (TAKING 30 MINUTES PRIOR TO BREAKFAST EVERY DAY 1 TABLET)
     Dates: start: 202211, end: 20221217
  2. PROTONIX [Suspect]
     Active Substance: PANTOPRAZOLE SODIUM
     Indication: Reflux laryngitis
  3. PEPCID [Suspect]
     Active Substance: FAMOTIDINE
     Indication: Gastrooesophageal reflux disease
     Dosage: 1 DF, 1X/DAY
     Dates: start: 202211, end: 20221217
  4. PEPCID [Suspect]
     Active Substance: FAMOTIDINE
     Indication: Reflux laryngitis
  5. LISINOPRIL [Concomitant]
     Active Substance: LISINOPRIL
     Indication: Hypertension
     Dosage: 5 MG, 2X/DAY (1 TABLET IN THE MORNING AND 1 TABLET AT NIGHT  BY MOUTH WITH MY MEALS (TWICE A DAY))
     Route: 048
     Dates: start: 2021

REACTIONS (5)
  - Tubulointerstitial nephritis [Unknown]
  - Chromaturia [Recovered/Resolved]
  - Blood urine present [Unknown]
  - Blood pressure increased [Recovered/Resolved]
  - Heart rate increased [Unknown]

NARRATIVE: CASE EVENT DATE: 20221201
